FAERS Safety Report 8889066 (Version 1)
Quarter: 2012Q4

REPORT INFORMATION
  Report Type: 
  Country: FR (occurrence: FR)
  Receive Date: 20121106
  Receipt Date: 20121106
  Transmission Date: 20130627
  Serious: Yes (Hospitalization)
  Sender: FDA-Public Use
  Company Number: FR-B.I. PHARMACEUTICALS,INC./RIDGEFIELD-2012-FF-01196FF

PATIENT
  Age: 87 Year
  Sex: Female

DRUGS (2)
  1. PRADAXA [Suspect]
     Indication: ATRIAL FIBRILLATION
     Dosage: 300 mg
     Route: 048
     Dates: start: 20120824
  2. OXYGEN [Concomitant]
     Indication: RESPIRATORY FAILURE

REACTIONS (7)
  - Rectal haemorrhage [Recovered/Resolved]
  - Fall [Recovered/Resolved]
  - Prescribed overdose [Unknown]
  - Haemoglobin decreased [Unknown]
  - Dyspnoea [Unknown]
  - Skin ulcer [Not Recovered/Not Resolved]
  - Cough [Recovered/Resolved]
